FAERS Safety Report 17661696 (Version 1)
Quarter: 2020Q2

REPORT INFORMATION
  Report Type: Spontaneous
  Country: US (occurrence: US)
  Receive Date: 20200411
  Receipt Date: 20200411
  Transmission Date: 20200713
  Serious: No
  Sender: FDA-Public Use
  Company Number: None

PATIENT
  Age: 45 Year
  Sex: Female

DRUGS (1)
  1. SPRYCEL [Suspect]
     Active Substance: DASATINIB
     Route: 048
     Dates: start: 2018

REACTIONS (4)
  - Pruritus [None]
  - Palmar-plantar erythrodysaesthesia syndrome [None]
  - Feeling hot [None]
  - Paraesthesia [None]

NARRATIVE: CASE EVENT DATE: 20200411
